FAERS Safety Report 4697249-X (Version None)
Quarter: 2005Q2

REPORT INFORMATION
  Report Type: 
  Country: None (occurrence: None)
  Receive Date: 20050621
  Receipt Date: 20050621
  Transmission Date: 20051028
  Serious: Yes (Death)
  Sender: FDA-Public Use
  Company Number: None

PATIENT
  Age: 69 Year
  Sex: Male

DRUGS (2)
  1. COUMADIN [Suspect]
     Dosage: PO
     Route: 048
  2. FELDENE [Suspect]
     Dosage: 10 MG BID PO
     Route: 048

REACTIONS (4)
  - CEREBRAL HAEMATOMA [None]
  - FACIAL PALSY [None]
  - HEMIPARESIS [None]
  - MENTAL STATUS CHANGES [None]
